FAERS Safety Report 7305299 (Version 2)
Quarter: 2014Q3

REPORT INFORMATION
  Report Type: Spontaneous
  Country: JP (occurrence: JP)
  Receive Date: 20100304
  Receipt Date: 20140814
  Transmission Date: 20150326
  Serious: Yes (Hospitalization, Other)
  Sender: FDA-Public Use
  Company Number: PHHY2010JP10424

PATIENT
  Age: 80 Year
  Sex: Male

DRUGS (1)
  1. GLIVEC [Suspect]
     Active Substance: IMATINIB MESYLATE
     Indication: GASTROINTESTINAL STROMAL TUMOUR
     Dosage: 300 MG, UNK
     Route: 048

REACTIONS (3)
  - Bone cancer [Recovering/Resolving]
  - Second primary malignancy [Recovering/Resolving]
  - Plasmacytoma [Recovered/Resolved]

NARRATIVE: CASE EVENT DATE: 200902
